FAERS Safety Report 19375157 (Version 5)
Quarter: 2021Q4

REPORT INFORMATION
  Report Type: Spontaneous
  Country: CA (occurrence: CA)
  Receive Date: 20210604
  Receipt Date: 20211117
  Transmission Date: 20220303
  Serious: Yes (Hospitalization)
  Sender: FDA-Public Use
  Company Number: CA-PFIZER INC-2021392786

PATIENT
  Age: 82 Year
  Sex: Male
  Weight: 99 kg

DRUGS (3)
  1. XELJANZ XR [Suspect]
     Active Substance: TOFACITINIB CITRATE
     Indication: Rheumatoid arthritis
     Dosage: 11 MG, 1X/DAY (STARTED APPROXIMATELY 26FEB2021)
     Route: 048
     Dates: start: 202102
  2. XELJANZ XR [Suspect]
     Active Substance: TOFACITINIB CITRATE
     Dosage: 11 MG, 1X/DAY (STARTED APPROXIMATELY 26FEB2021)
     Route: 048
     Dates: start: 20210226, end: 2021
  3. PREDNISONE [Concomitant]
     Active Substance: PREDNISONE
     Dosage: DECREASING

REACTIONS (4)
  - Hip deformity [Unknown]
  - Poisoning [Unknown]
  - Infection [Unknown]
  - Drug ineffective [Unknown]

NARRATIVE: CASE EVENT DATE: 20210101
